FAERS Safety Report 24109692 (Version 1)
Quarter: 2024Q3

REPORT INFORMATION
  Report Type: Spontaneous
  Country: FR (occurrence: FR)
  Receive Date: 20240718
  Receipt Date: 20240718
  Transmission Date: 20241016
  Serious: Yes (Hospitalization)
  Sender: TEVA
  Company Number: None

PATIENT
  Age: 24 Year
  Sex: Male
  Weight: 133 kg

DRUGS (16)
  1. FLUCONAZOLE [Suspect]
     Active Substance: FLUCONAZOLE
     Indication: Antibiotic therapy
     Route: 048
     Dates: start: 20240509
  2. TRAMADOL HYDROCHLORIDE [Concomitant]
     Active Substance: TRAMADOL HYDROCHLORIDE
     Indication: Product used for unknown indication
     Dosage: 100 MG/2 ML
     Route: 065
  3. NICOTINE [Concomitant]
     Active Substance: NICOTINE
     Indication: Product used for unknown indication
     Route: 065
  4. FUROSEMIDE [Suspect]
     Active Substance: FUROSEMIDE
     Indication: Anuria
     Route: 042
     Dates: start: 20240503
  5. HEPARIN CALCIUM [Concomitant]
     Active Substance: HEPARIN CALCIUM
     Indication: Product used for unknown indication
     Route: 065
  6. ACETAMINOPHEN [Suspect]
     Active Substance: ACETAMINOPHEN
     Indication: Pain
     Route: 042
  7. METOCLOPRAMIDE [Concomitant]
     Active Substance: METOCLOPRAMIDE
     Indication: Product used for unknown indication
     Route: 065
  8. ONDANSETRON [Concomitant]
     Active Substance: ONDANSETRON
     Indication: Product used for unknown indication
     Route: 065
  9. PHLOROGLUCINOL [Concomitant]
     Active Substance: PHLOROGLUCINOL
     Indication: Product used for unknown indication
     Dosage: PHLOROGLUCINOL HYDRATE
     Route: 065
  10. ERTAPENEM SODIUM [Suspect]
     Active Substance: ERTAPENEM SODIUM
     Indication: Antibiotic therapy
     Route: 042
     Dates: start: 20240522
  11. DARBEPOETIN ALFA [Concomitant]
     Active Substance: DARBEPOETIN ALFA
     Indication: Product used for unknown indication
     Dosage: DARBEPOETIN ALFA ((MAMMIFERE/HAMSTER/CELLULES CHO))
     Route: 065
  12. ASPIRIN [Concomitant]
     Active Substance: ASPIRIN
     Indication: Product used for unknown indication
     Route: 065
  13. PAROXETINE [Suspect]
     Active Substance: PAROXETINE
     Indication: Flat affect
     Dosage: PAROXETINE (HYDROCHLORIDE) ANHYDROUS
     Route: 048
     Dates: start: 20240611
  14. BISOPROLOL [Concomitant]
     Active Substance: BISOPROLOL\BISOPROLOL FUMARATE
     Indication: Product used for unknown indication
     Dosage: BISOPROLOL (FUMARATE DE)
     Route: 065
  15. PANTOPRAZOLE [Suspect]
     Active Substance: PANTOPRAZOLE
     Indication: Ulcer
     Route: 042
     Dates: start: 20240409
  16. 1,3,5-TRIMETHOXYBENZENE [Concomitant]
     Active Substance: 1,3,5-TRIMETHOXYBENZENE
     Indication: Product used for unknown indication
     Dosage: PHLOROGLUCINOL (TRIMETHYL ETHER DU)
     Route: 065

REACTIONS (2)
  - Anaemia [Not Recovered/Not Resolved]
  - Neutropenia [Recovered/Resolved]

NARRATIVE: CASE EVENT DATE: 20240619
